FAERS Safety Report 10836113 (Version 1)
Quarter: 2015Q1

REPORT INFORMATION
  Report Type: Spontaneous
  Country: GB (occurrence: None)
  Receive Date: 20150218
  Receipt Date: 20150218
  Transmission Date: 20150721
  Serious: Yes (Death)
  Sender: FDA-Public Use
  Company Number: FK201500796

PATIENT
  Age: 69 Year
  Sex: Male

DRUGS (8)
  1. OXALIPLATIN. [Suspect]
     Active Substance: OXALIPLATIN
     Indication: RECTAL ADENOCARCINOMA
     Route: 042
     Dates: start: 20140414, end: 201409
  2. OMEPRAZOLE. [Concomitant]
     Active Substance: OMEPRAZOLE
  3. CAPECITABINE (CAPECITABINE) (CAPECITABINE) [Suspect]
     Active Substance: CAPECITABINE
     Indication: RECTAL ADENOCARCINOMA
     Route: 042
     Dates: start: 20140414, end: 201409
  4. CLOPIDOGREL [Concomitant]
     Active Substance: CLOPIDOGREL BISULFATE
  5. RISPERIDONE. [Concomitant]
     Active Substance: RISPERIDONE
  6. CANDESARTAN [Concomitant]
     Active Substance: CANDESARTAN
  7. BISOPROLOL [Concomitant]
     Active Substance: BISOPROLOL
  8. SIMVASTATIN. [Concomitant]
     Active Substance: SIMVASTATIN

REACTIONS (7)
  - Pneumothorax [None]
  - General physical health deterioration [None]
  - Chest pain [None]
  - Platelet count decreased [None]
  - Change of bowel habit [None]
  - Interstitial lung disease [None]
  - Respiratory failure [None]

NARRATIVE: CASE EVENT DATE: 201410
